FAERS Safety Report 8158513-5 (Version None)
Quarter: 2012Q1

REPORT INFORMATION
  Report Type: 
  Country: None (occurrence: None)
  Receive Date: 20120223
  Receipt Date: 20120217
  Transmission Date: 20120608
  Serious: Yes (Other)
  Sender: FDA-Public Use
  Company Number: US-PFIZER INC-2012003001

PATIENT
  Sex: Female

DRUGS (1)
  1. LYRICA [Suspect]
     Dosage: UNK
     Dates: end: 20111218

REACTIONS (5)
  - HYPERSENSITIVITY [None]
  - SWELLING FACE [None]
  - PHARYNGEAL OEDEMA [None]
  - FATIGUE [None]
  - MALAISE [None]
